FAERS Safety Report 25162158 (Version 3)
Quarter: 2025Q2

REPORT INFORMATION
  Report Type: Spontaneous
  Country: US (occurrence: US)
  Receive Date: 20250404
  Receipt Date: 20250511
  Transmission Date: 20250716
  Serious: No
  Sender: SANOFI AVENTIS
  Company Number: US-SA-2025SA096384

PATIENT
  Age: 49 Year
  Sex: Female
  Weight: 80 kg

DRUGS (19)
  1. DUPIXENT [Suspect]
     Active Substance: DUPILUMAB
     Indication: Asthma
     Route: 058
     Dates: start: 20250328, end: 20250328
  2. DUPIXENT [Suspect]
     Active Substance: DUPILUMAB
     Dosage: 300 MG, QOW
     Route: 058
  3. FLUOXETINE HYDROCHLORIDE [Concomitant]
     Active Substance: FLUOXETINE HYDROCHLORIDE
  4. AMLODIPINE BESYLATE [Concomitant]
     Active Substance: AMLODIPINE BESYLATE
  5. MONTELUKAST SODIUM [Concomitant]
     Active Substance: MONTELUKAST SODIUM
  6. HYDROXYZINE HYDROCHLORIDE [Concomitant]
     Active Substance: HYDROXYZINE HYDROCHLORIDE
  7. ECHINACEA + GOLDENSEAL [Concomitant]
  8. LOSARTAN POTASSIUM [Concomitant]
     Active Substance: LOSARTAN POTASSIUM
  9. BENZONATATE [Concomitant]
     Active Substance: BENZONATATE
  10. ALBUTEROL SULFATE [Concomitant]
     Active Substance: ALBUTEROL SULFATE
  11. SYMBICORT [Concomitant]
     Active Substance: BUDESONIDE\FORMOTEROL FUMARATE DIHYDRATE
  12. FAMOTIDINE [Concomitant]
     Active Substance: FAMOTIDINE
  13. LORAZEPAM [Concomitant]
     Active Substance: LORAZEPAM
  14. VITAMIN D3 K2 [Concomitant]
  15. OXYGEN [Concomitant]
     Active Substance: OXYGEN
  16. ONDANSETRON HYDROCHLORIDE [Concomitant]
     Active Substance: ONDANSETRON HYDROCHLORIDE
  17. TRELEGY ELLIPTA [Concomitant]
     Active Substance: FLUTICASONE FUROATE\UMECLIDINIUM BROMIDE\VILANTEROL TRIFENATATE
  18. AMBIEN [Concomitant]
     Active Substance: ZOLPIDEM TARTRATE
  19. OMEGA-3 FATTY ACIDS [Concomitant]
     Active Substance: OMEGA-3 FATTY ACIDS

REACTIONS (15)
  - Lacrimation increased [Unknown]
  - Eye swelling [Unknown]
  - Balance disorder [Unknown]
  - Condition aggravated [Unknown]
  - Gait disturbance [Unknown]
  - Nausea [Recovering/Resolving]
  - Vomiting [Unknown]
  - Pain [Unknown]
  - Insomnia [Unknown]
  - Anxiety [Unknown]
  - Migraine [Recovering/Resolving]
  - Erythema of eyelid [Recovering/Resolving]
  - Swelling of eyelid [Recovering/Resolving]
  - Eye pruritus [Unknown]
  - Asthma [Unknown]

NARRATIVE: CASE EVENT DATE: 20250328
